FAERS Safety Report 20813463 (Version 1)
Quarter: 2022Q2

REPORT INFORMATION
  Report Type: Spontaneous
  Country: ES (occurrence: ES)
  Receive Date: 20220511
  Receipt Date: 20220511
  Transmission Date: 20220720
  Serious: Yes (Other)
  Sender: FDA-Public Use
  Company Number: None

PATIENT
  Age: 11 Year
  Sex: Male

DRUGS (3)
  1. VANCOMYCIN [Suspect]
     Active Substance: VANCOMYCIN
     Indication: Bone marrow failure
     Route: 042
     Dates: start: 20211114, end: 20211119
  2. CEFEPIME [Suspect]
     Active Substance: CEFEPIME HYDROCHLORIDE
     Indication: Bone marrow failure
     Dosage: STRENGTH 100 MG
     Route: 042
     Dates: start: 20211113, end: 20211118
  3. PLATELETS [Concomitant]
     Active Substance: HUMAN PLATELET, ALLOGENIC
     Indication: Bone marrow failure
     Route: 042
     Dates: start: 20211118, end: 20211118

REACTIONS (4)
  - Vomiting [Recovered/Resolved]
  - Urticaria [Recovered/Resolved]
  - Nausea [Recovered/Resolved]
  - Pruritus [Recovered/Resolved]

NARRATIVE: CASE EVENT DATE: 20211118
